FAERS Safety Report 18626810 (Version 2)
Quarter: 2020Q4

REPORT INFORMATION
  Report Type: Report from Study
  Country: MX (occurrence: MX)
  Receive Date: 20201217
  Receipt Date: 20201224
  Transmission Date: 20210114
  Serious: Yes (Hospitalization, Other)
  Sender: FDA-Public Use
  Company Number: NVSC2020MX331092

PATIENT
  Age: 70 Year
  Sex: Male
  Weight: 88 kg

DRUGS (6)
  1. LIPITOR [Concomitant]
     Active Substance: ATORVASTATIN CALCIUM
     Dosage: 0.5 DF, QD, STARTED 3 MONTH AGO
     Route: 048
  2. LIPITOR [Concomitant]
     Active Substance: ATORVASTATIN CALCIUM
     Indication: BLOOD TRIGLYCERIDES
     Dosage: 1 DF, QD, DISCONTINUED 3 MONTHS AGO
     Route: 048
     Dates: start: 2012
  3. COPLAVIX [Concomitant]
     Active Substance: ASPIRIN\CLOPIDOGREL BISULFATE
     Indication: THROMBOSIS
     Dosage: 1 DF, QD
     Route: 048
     Dates: start: 2012
  4. EXFORGE HCT [Suspect]
     Active Substance: AMLODIPINE BESYLATE\HYDROCHLOROTHIAZIDE\VALSARTAN
     Indication: INFARCTION
     Dosage: 1 DF, QD
     Route: 048
     Dates: start: 201203
  5. LOBIVON [Concomitant]
     Active Substance: NEBIVOLOL HYDROCHLORIDE
     Indication: INFARCTION
     Dosage: 0.5 DF, QD
     Route: 048
     Dates: start: 2012
  6. EXFORGE HCT [Suspect]
     Active Substance: AMLODIPINE BESYLATE\HYDROCHLOROTHIAZIDE\VALSARTAN
     Indication: HYPERTENSION

REACTIONS (6)
  - Anal abscess [Recovered/Resolved]
  - Gait disturbance [Recovered/Resolved]
  - Angina unstable [Recovered/Resolved]
  - Discomfort [Recovered/Resolved]
  - Deafness unilateral [Not Recovered/Not Resolved]
  - Product use in unapproved indication [Unknown]

NARRATIVE: CASE EVENT DATE: 202008
